FAERS Safety Report 10082000 (Version 2)
Quarter: 2014Q2

REPORT INFORMATION
  Report Type: Spontaneous
  Country: US (occurrence: None)
  Receive Date: 20140414
  Receipt Date: 20140422
  Transmission Date: 20141212
  Serious: Yes (Other)
  Sender: FDA-Public Use
  Company Number: 2014-US-003947

PATIENT
  Age: 55 Year
  Sex: Male

DRUGS (2)
  1. XYREM [Suspect]
     Indication: NARCOLEPSY
     Route: 048
     Dates: start: 200607
  2. COUMARIN [Suspect]
     Indication: PRODUCT USED FOR UNKNOWN INDICATION
     Route: 048

REACTIONS (8)
  - Sleep apnoea syndrome [None]
  - Jaw fracture [None]
  - Foot fracture [None]
  - Cataplexy [None]
  - Head injury [None]
  - Fall [None]
  - Cerebral haemorrhage [None]
  - Convulsion [None]
